FAERS Safety Report 9491273 (Version 1)
Quarter: 2013Q3

REPORT INFORMATION
  Report Type: Spontaneous
  Country: FR (occurrence: FR)
  Receive Date: 20130830
  Receipt Date: 20130830
  Transmission Date: 20140515
  Serious: Yes (Hospitalization)
  Sender: FDA-Public Use
  Company Number: FR-PFIZER INC-2013247637

PATIENT
  Age: 56 Year
  Sex: Female

DRUGS (6)
  1. CAMPTO [Suspect]
     Indication: COLORECTAL CANCER
     Dosage: 290 MG/COURSE
     Route: 041
     Dates: start: 201305
  2. FLUOROURACIL [Suspect]
     Indication: COLORECTAL CANCER
     Dosage: 3000 MG/COURSE
     Route: 041
     Dates: start: 201202
  3. AVASTIN [Suspect]
     Indication: COLORECTAL CANCER
     Dosage: 300 MG/COURSE
     Route: 041
     Dates: start: 201305
  4. EFFENTORA [Suspect]
     Dosage: 200 UG, 1X/DAY
     Route: 048
     Dates: start: 20130614
  5. PARACETAMOL [Suspect]
     Dosage: 1 G, AS NEEDED
     Route: 048
     Dates: start: 2011, end: 20130715
  6. PARIET [Suspect]
     Dosage: 40 MG, 1X/DAY
     Route: 048
     Dates: start: 2011, end: 20130715

REACTIONS (4)
  - Gamma-glutamyltransferase increased [Recovered/Resolved]
  - Transaminases increased [Recovered/Resolved]
  - Blood alkaline phosphatase increased [Recovered/Resolved]
  - Hepatic pain [Recovered/Resolved]
